FAERS Safety Report 8299636-X (Version None)
Quarter: 2012Q2

REPORT INFORMATION
  Report Type: 
  Country: None (occurrence: None)
  Receive Date: 20120419
  Receipt Date: 20120413
  Transmission Date: 20120825
  Serious: Yes (Other)
  Sender: FDA-Public Use
  Company Number: ZA-GLAXOSMITHKLINE-B0796444A

PATIENT
  Sex: Male

DRUGS (2)
  1. LAMICTAL [Suspect]
     Indication: AFFECTIVE DISORDER
     Dosage: 350MG PER DAY
     Route: 065
     Dates: start: 20020101
  2. ALPRAZOLAM [Concomitant]
     Indication: PRODUCT USED FOR UNKNOWN INDICATION
     Route: 065

REACTIONS (6)
  - DYSGEUSIA [None]
  - ACNE [None]
  - HALLUCINATION, OLFACTORY [None]
  - SKIN EXFOLIATION [None]
  - GINGIVAL RECESSION [None]
  - DRY MOUTH [None]
